FAERS Safety Report 5845857-2 (Version None)
Quarter: 2008Q3

REPORT INFORMATION
  Report Type: 
  Country: None (occurrence: None)
  Receive Date: 20080814
  Receipt Date: 20080801
  Transmission Date: 20090109
  Serious: No
  Sender: FDA-Public Use
  Company Number: US-BOEHRINGER INGELHEIM GMBH, GERMANY-2008-BP-10125BP

PATIENT
  Age: 70 Year
  Sex: Female

DRUGS (6)
  1. SPIRIVA [Suspect]
     Indication: CHRONIC OBSTRUCTIVE PULMONARY DISEASE
     Route: 055
     Dates: start: 20070601
  2. SPIRIVA [Suspect]
     Indication: LUNG DISORDER
  3. AVAPRO [Concomitant]
     Indication: HYPERTENSION
  4. PLAVIX [Concomitant]
     Indication: STENT PLACEMENT
  5. CRESTOR [Concomitant]
  6. ZETIA [Concomitant]

REACTIONS (1)
  - GINGIVAL PAIN [None]
